FAERS Safety Report 6103637-7 (Version None)
Quarter: 2009Q1

REPORT INFORMATION
  Report Type: 
  Country: None (occurrence: None)
  Receive Date: 20090227
  Receipt Date: 20090213
  Transmission Date: 20090719
  Serious: Yes (Death)
  Sender: FDA-Public Use
  Company Number: 6048522

PATIENT
  Age: 71 Year
  Sex: Male

DRUGS (11)
  1. LEVOTHYROXINE SODIUM [Suspect]
     Indication: HYPOTHYROIDISM
     Dosage: 1 DOSAGE FORMS (1 DOSAGE FORMS, 1 IN 1 D) ORAL
     Route: 048
  2. CORDARONE [Suspect]
     Indication: DRUG USE FOR UNKNOWN INDICATION
     Dosage: 1 DOSAGE FORMS (1 DOSAGE FORMS, 1 IN 1 D) ORAL
     Route: 048
     Dates: end: 20080523
  3. KARDEGIC (ACETYLSALICYLATE LYSINE) [Concomitant]
  4. BUMETANIDE [Concomitant]
  5. ATORVASTATIN CALCIUM [Concomitant]
  6. BISOPROLOL FUMARATE [Concomitant]
  7. ATACAND (CANDESARTAN CILIEXTIL) [Concomitant]
  8. NOVONORM (REPAGLINIDE) [Concomitant]
  9. AMARYL [Concomitant]
  10. COUMADIN [Concomitant]
  11. INSPRA [Concomitant]

REACTIONS (5)
  - ASTHENIA [None]
  - BRADYCARDIA [None]
  - HAEMODYNAMIC INSTABILITY [None]
  - HYPERTHYROIDISM [None]
  - PYREXIA [None]
